FAERS Safety Report 17871271 (Version 1)
Quarter: 2020Q2

REPORT INFORMATION
  Report Type: Report from Study
  Country: HK (occurrence: HK)
  Receive Date: 20200608
  Receipt Date: 20200608
  Transmission Date: 20200714
  Serious: Yes (Death)
  Sender: FDA-Public Use
  Company Number: HK-PFIZER INC-2020220563

PATIENT
  Age: 74 Year
  Sex: Male

DRUGS (1)
  1. GLASDEGIB [Suspect]
     Active Substance: GLASDEGIB
     Dosage: UNK

REACTIONS (1)
  - Death [Fatal]
